FAERS Safety Report 6968294-6 (Version None)
Quarter: 2010Q3

REPORT INFORMATION
  Report Type: 
  Country: None (occurrence: None)
  Receive Date: 20100907
  Receipt Date: 20100827
  Transmission Date: 20110219
  Serious: Yes (Other)
  Sender: FDA-Public Use
  Company Number: US-JNJFOC-20100608438

PATIENT
  Sex: Female
  Weight: 61.24 kg

DRUGS (2)
  1. RISPERDAL [Suspect]
     Indication: MENTAL DISORDER
     Route: 048
  2. LEXAPRO [Concomitant]
     Indication: MENTAL DISORDER
     Route: 048

REACTIONS (4)
  - BLOOD GLUCOSE INCREASED [None]
  - BREAST MASS [None]
  - HEAT STROKE [None]
  - POOR QUALITY DRUG ADMINISTERED [None]
